FAERS Safety Report 7293100-2 (Version None)
Quarter: 2011Q1

REPORT INFORMATION
  Report Type: 
  Country: None (occurrence: None)
  Receive Date: 20110215
  Receipt Date: 20110207
  Transmission Date: 20110831
  Serious: Yes (Hospitalization)
  Sender: FDA-Public Use
  Company Number: JP-ROCHE-756981

PATIENT
  Sex: Male

DRUGS (61)
  1. TOCILIZUMAB [Suspect]
     Route: 042
     Dates: start: 20091028, end: 20091028
  2. PREDONINE [Concomitant]
     Route: 048
     Dates: start: 20090808, end: 20090810
  3. PREDONINE [Concomitant]
     Route: 048
     Dates: start: 20091111, end: 20091124
  4. DEXAMETHASONE PALMITATE [Concomitant]
     Route: 041
     Dates: start: 20090820, end: 20090908
  5. FLUMARIN [Concomitant]
     Route: 041
     Dates: start: 20090821, end: 20090904
  6. NORVASC [Concomitant]
     Route: 048
     Dates: start: 20091125, end: 20091221
  7. SANDIMMUNE [Concomitant]
     Route: 041
     Dates: start: 20090814, end: 20090902
  8. TOCILIZUMAB [Suspect]
     Route: 042
     Dates: start: 20100203, end: 20100317
  9. TOCILIZUMAB [Suspect]
     Route: 042
     Dates: start: 20100421, end: 20110104
  10. PREDONINE [Concomitant]
     Route: 048
     Dates: start: 20100728
  11. PREDONINE [Concomitant]
     Route: 048
     Dates: start: 20110105, end: 20110111
  12. DEXAMETHASONE PALMITATE [Concomitant]
     Route: 041
     Dates: start: 20090814, end: 20090819
  13. PREDNISOLONE SODIUM SUCCINATE INJ [Concomitant]
     Route: 041
     Dates: start: 20100326, end: 20100326
  14. NORVASC [Concomitant]
     Route: 048
     Dates: start: 20090804, end: 20090811
  15. NORVASC [Concomitant]
     Route: 048
     Dates: start: 20091005, end: 20091012
  16. PREDONINE [Concomitant]
     Route: 048
     Dates: start: 20091014, end: 20091027
  17. PREDONINE [Concomitant]
     Route: 048
     Dates: start: 20100531, end: 20100727
  18. DEXAMETHASONE PALMITATE [Concomitant]
     Route: 041
     Dates: start: 20090909, end: 20090915
  19. DEXAMETHASONE PALMITATE [Concomitant]
     Route: 041
     Dates: start: 20110104, end: 20110104
  20. BAKTAR [Concomitant]
     Dosage: FORM: TABLET
     Route: 048
     Dates: start: 20090804, end: 20090810
  21. BAKTAR [Concomitant]
     Dosage: GRANULATED POWDER
     Route: 048
     Dates: start: 20101230
  22. TOCILIZUMAB [Suspect]
     Route: 042
     Dates: start: 20091005, end: 20091014
  23. PREDONINE [Concomitant]
     Route: 048
     Dates: start: 20091008, end: 20091013
  24. PREDONINE [Concomitant]
     Route: 048
     Dates: start: 20091221, end: 20100119
  25. NORVASC [Concomitant]
     Route: 048
     Dates: start: 20090812, end: 20091004
  26. BONALON [Concomitant]
     Route: 048
     Dates: start: 20091003
  27. ATARAX [Concomitant]
     Route: 041
     Dates: start: 20110101, end: 20110103
  28. TOCILIZUMAB [Suspect]
     Route: 042
     Dates: start: 20110124
  29. PREDONINE [Concomitant]
     Route: 048
     Dates: start: 20090801, end: 20090802
  30. PREDONINE [Concomitant]
     Route: 048
     Dates: start: 20091001, end: 20091007
  31. PREDONINE [Concomitant]
     Route: 048
     Dates: start: 20100317, end: 20100505
  32. PREDNISOLONE SODIUM SUCCINATE INJ [Concomitant]
     Route: 041
     Dates: start: 20090923, end: 20090930
  33. TOCILIZUMAB [Suspect]
     Route: 042
     Dates: start: 20091111, end: 20091111
  34. TOCILIZUMAB [Suspect]
     Route: 042
     Dates: start: 20091125, end: 20091209
  35. TOCILIZUMAB [Suspect]
     Route: 042
     Dates: start: 20091221, end: 20100120
  36. PREDONINE [Concomitant]
     Route: 048
     Dates: start: 20090803, end: 20090804
  37. DEXAMETHASONE PALMITATE [Concomitant]
     Route: 041
     Dates: start: 20101230, end: 20101231
  38. FLUMARIN [Concomitant]
     Route: 041
     Dates: start: 20090802, end: 20090811
  39. FAMOTIDINE [Concomitant]
     Dosage: FORM: PERORAL AGENT
     Route: 048
     Dates: start: 20090729, end: 20090813
  40. GRAN [Concomitant]
     Route: 058
     Dates: start: 20090824, end: 20090904
  41. SODIUM ALGINATE [Concomitant]
     Dosage: DRUG: SANMEL, FORM: PERORAL AGENT
     Route: 048
     Dates: start: 20090826, end: 20090904
  42. TOCILIZUMAB [Suspect]
     Route: 042
     Dates: start: 20100329, end: 20100405
  43. PREDONINE [Concomitant]
     Route: 048
     Dates: start: 20090814, end: 20090930
  44. PREDONINE [Concomitant]
     Route: 048
     Dates: start: 20100506, end: 20100530
  45. PREDONINE [Concomitant]
     Route: 048
     Dates: start: 20110112
  46. FAMOTIDINE [Concomitant]
     Route: 048
     Dates: start: 20090904
  47. NORVASC [Concomitant]
     Route: 048
     Dates: start: 20091013, end: 20091124
  48. NORVASC [Concomitant]
     Dosage: PERORAL AGENT
     Route: 048
     Dates: start: 20110131, end: 20110206
  49. TOCILIZUMAB [Suspect]
     Indication: JUVENILE ARTHRITIS
     Route: 042
     Dates: start: 20090902, end: 20090908
  50. TOCILIZUMAB [Suspect]
     Route: 042
     Dates: start: 20090916, end: 20090923
  51. TOCILIZUMAB [Suspect]
     Route: 042
     Dates: start: 20090930, end: 20090930
  52. PREDONINE [Concomitant]
     Route: 048
     Dates: start: 20091028, end: 20091110
  53. PREDONINE [Concomitant]
     Route: 048
     Dates: start: 20091125, end: 20091220
  54. PREDONINE [Concomitant]
     Route: 048
     Dates: start: 20100120, end: 20100216
  55. PREDONINE [Concomitant]
     Route: 048
     Dates: start: 20100217, end: 20100316
  56. DEXAMETHASONE PALMITATE [Concomitant]
     Route: 041
     Dates: start: 20090916, end: 20090922
  57. DEXAMETHASONE PALMITATE [Concomitant]
     Route: 041
     Dates: start: 20110101, end: 20110103
  58. FLUCONAZOLE [Concomitant]
     Route: 065
     Dates: start: 20090806, end: 20091001
  59. NORVASC [Concomitant]
     Route: 048
     Dates: start: 20110207
  60. BAKTAR [Concomitant]
     Dosage: FORM: GRANULATED POWDER
     Route: 048
     Dates: start: 20090811
  61. NEORAL [Concomitant]
     Route: 048
     Dates: start: 20090902, end: 20091014

REACTIONS (3)
  - JUVENILE ARTHRITIS [None]
  - ENTEROCOLITIS [None]
  - ABSCESS [None]
